FAERS Safety Report 5800065-6 (Version None)
Quarter: 2008Q3

REPORT INFORMATION
  Report Type: 
  Country: None (occurrence: None)
  Receive Date: 20080703
  Receipt Date: 20080619
  Transmission Date: 20090109
  Serious: Yes (Other)
  Sender: FDA-Public Use
  Company Number: JP-GENENTECH-263532

PATIENT
  Age: 51 Year
  Sex: Female
  Weight: 61.4 kg

DRUGS (11)
  1. AVASTIN [Suspect]
     Indication: COLON CANCER
     Dosage: 5 MG/KG, Q2W
     Route: 041
     Dates: start: 20080528
  2. KYTRIL [Suspect]
     Indication: PROPHYLAXIS
     Dosage: 3 MG, QD
     Route: 041
     Dates: start: 20080528
  3. IRINOTECAN [Suspect]
     Indication: COLON CANCER
     Route: 041
  4. FLUOROURACIL [Suspect]
     Indication: COLON CANCER
     Route: 042
  5. CALCIUM LEVOFOLINATE [Suspect]
     Indication: COLON CANCER
     Route: 041
  6. FAMOTIDINE [Concomitant]
     Indication: DRUG USE FOR UNKNOWN INDICATION
  7. MAGNESIUM OXIDE [Concomitant]
     Indication: DRUG USE FOR UNKNOWN INDICATION
  8. DEXAMETHASONE SODIUM PHOSPHATE [Concomitant]
     Indication: DRUG USE FOR UNKNOWN INDICATION
  9. OXYCONTIN [Concomitant]
     Indication: DRUG USE FOR UNKNOWN INDICATION
  10. DOMPERIDONE [Concomitant]
     Indication: DRUG USE FOR UNKNOWN INDICATION
  11. RILMAZAFONE HYDROCHLORIDE [Concomitant]
     Indication: DRUG USE FOR UNKNOWN INDICATION

REACTIONS (1)
  - HEPATIC FUNCTION ABNORMAL [None]
